FAERS Safety Report 5529810-4 (Version None)
Quarter: 2007Q4

REPORT INFORMATION
  Report Type: 
  Country: None (occurrence: None)
  Receive Date: 20071129
  Receipt Date: 20070920
  Transmission Date: 20080405
  Serious: No
  Sender: FDA-Public Use
  Company Number: US-ABBOTT-07P-163-0417867-00

PATIENT
  Sex: Male
  Weight: 99.8 kg

DRUGS (3)
  1. MERIDIA [Suspect]
     Indication: WEIGHT CONTROL
     Route: 048
     Dates: start: 20070201
  2. DIOVAN HCT [Concomitant]
     Indication: BLOOD PRESSURE
     Dosage: 160/25
     Route: 048
     Dates: start: 20060901
  3. MELOXICAM [Concomitant]
     Indication: ARTHRALGIA
     Route: 048
     Dates: start: 20070801

REACTIONS (2)
  - MUSCULOSKELETAL STIFFNESS [None]
  - PAIN IN EXTREMITY [None]
